FAERS Safety Report 8760823 (Version 1)
Quarter: 2012Q4

REPORT INFORMATION
  Report Type: 
  Country: US (occurrence: US)
  Receive Date: 20120903
  Receipt Date: 20120903
  Transmission Date: 20130627
  Serious: No
  Sender: FDA-Public Use
  Company Number: US-PFIZER INC-2012213023

PATIENT
  Age: 63 Year
  Sex: Female

DRUGS (1)
  1. ZOLOFT [Suspect]
     Dosage: UNK

REACTIONS (4)
  - Withdrawal syndrome [Unknown]
  - Dizziness [Unknown]
  - Irritability [Unknown]
  - Feeling abnormal [Unknown]
